FAERS Safety Report 5547243-1 (Version None)
Quarter: 2007Q4

REPORT INFORMATION
  Report Type: 
  Country: None (occurrence: None)
  Receive Date: 20071128
  Receipt Date: 20061204
  Transmission Date: 20080405
  Serious: Yes (Other)
  Sender: FDA-Public Use
  Company Number: 2006151674

PATIENT
  Age: 69 Year
  Sex: Female
  Weight: 77.1115 kg

DRUGS (8)
  1. LIPITOR [Suspect]
     Indication: BLOOD CHOLESTEROL INCREASED
     Dosage: 10 MG (10 MG, 1 IN 1 D)
     Dates: start: 20050101
  2. KENALOG [Concomitant]
  3. LIDOCAINE [Concomitant]
  4. ADVIL [Concomitant]
  5. DARVOCET [Concomitant]
  6. SYNTHROID [Concomitant]
  7. GLUCOSAMINE (GLUCOSAMINE) [Concomitant]
  8. CHONDROITIN (CHONDROITIN SULFATE) [Concomitant]

REACTIONS (6)
  - ALOPECIA [None]
  - ARTHRALGIA [None]
  - BONE PAIN [None]
  - BRONCHITIS [None]
  - JOINT STIFFNESS [None]
  - MYALGIA [None]
